FAERS Safety Report 6095293-1 (Version None)
Quarter: 2009Q1

REPORT INFORMATION
  Report Type: 
  Country: None (occurrence: None)
  Receive Date: 20090227
  Receipt Date: 20080403
  Transmission Date: 20090719
  Serious: No
  Sender: FDA-Public Use
  Company Number: A0712942A

PATIENT
  Age: 25 Year
  Sex: Female
  Weight: 86.4 kg

DRUGS (4)
  1. LAMICTAL [Suspect]
     Dosage: 200MG PER DAY
     Route: 048
     Dates: end: 20080201
  2. LEXAPRO [Concomitant]
  3. ZOFRAN [Concomitant]
  4. BIRTH CONTROL PILLS [Concomitant]

REACTIONS (1)
  - RASH [None]
